APPROVED DRUG PRODUCT: OCTREOTIDE ACETATE
Active Ingredient: OCTREOTIDE ACETATE
Strength: EQ 0.1MG BASE/ML
Dosage Form/Route: INJECTABLE;INJECTION
Application: A217860 | Product #001
Applicant: HAINAN SHUANGCHENG PHARMACEUTICALS CO LTD
Approved: May 2, 2024 | RLD: No | RS: No | Type: DISCN